FAERS Safety Report 12208288 (Version 1)
Quarter: 2016Q1

REPORT INFORMATION
  Report Type: Report from Study
  Country: US (occurrence: US)
  Receive Date: 20160324
  Receipt Date: 20160324
  Transmission Date: 20160526
  Serious: Yes (Other)
  Sender: FDA-Public Use
  Company Number: US-BAYER-2016-053464

PATIENT
  Age: 1 Year
  Sex: Male

DRUGS (2)
  1. ASPIRIN. [Suspect]
     Active Substance: ASPIRIN
  2. ENOXAPARIN [Suspect]
     Active Substance: ENOXAPARIN
     Indication: ARTERIAL THROMBOSIS

REACTIONS (2)
  - Labelled drug-drug interaction medication error [None]
  - Cerebral haemorrhage [None]
